FAERS Safety Report 7392052-4 (Version None)
Quarter: 2011Q1

REPORT INFORMATION
  Report Type: 
  Country: None (occurrence: None)
  Receive Date: 20110323
  Receipt Date: 20110303
  Transmission Date: 20110831
  Serious: Yes (Hospitalization)
  Sender: FDA-Public Use
  Company Number: 20110173

PATIENT
  Age: 70 Year
  Sex: Male
  Weight: 122.7 kg

DRUGS (7)
  1. CANGRELOR VS. CLOPIDOGREL VS. PLACEBO [Suspect]
     Indication: PERCUTANEOUS CORONARY INTERVENTION
     Dosage: 4 CAPSULES PRE/POST
     Dates: start: 20101220, end: 20101220
  2. WARFARIN SODIUM [Concomitant]
  3. LISINOPRIL [Suspect]
     Indication: HYPERTENSION
     Dosage: 5 MG  DAY ORAL
     Route: 048
     Dates: start: 20101222, end: 20101222
  4. HEPARIN (UNFRACTIONATED HEPARIN) [Concomitant]
  5. HEPARIN (LOW MOLECULAR WEIGHT HEPARIN) [Concomitant]
  6. CANGRELOR VS. CLOPIDOGREL VS PLACEBO [Suspect]
     Indication: PERCUTANEOUS CORONARY INTERVENTION
     Dosage: 9.2 ML AND 73.2 ML/HR, INTRAVENOUS
     Route: 042
     Dates: start: 20101220, end: 20101220
  7. FUROSEMIDE [Suspect]
     Indication: DIURETIC THERAPY
     Dosage: 40 MG Q 12HR, INTRAVENOUS
     Route: 042
     Dates: start: 20101220, end: 20101220

REACTIONS (3)
  - RENAL FAILURE ACUTE [None]
  - HYPOTENSION [None]
  - NEPHROPATHY TOXIC [None]
